FAERS Safety Report 16515694 (Version 1)
Quarter: 2019Q3

REPORT INFORMATION
  Report Type: Spontaneous
  Country: US (occurrence: US)
  Receive Date: 20190702
  Receipt Date: 20190702
  Transmission Date: 20191004
  Serious: Yes (Death, Life-Threatening, Hospitalization)
  Sender: FDA-Public Use
  Company Number: None

PATIENT
  Age: 73 Year
  Sex: Male

DRUGS (2)
  1. ASPIRIN. [Concomitant]
     Active Substance: ASPIRIN
  2. WARFARIN [Suspect]
     Active Substance: WARFARIN

REACTIONS (7)
  - Intraventricular haemorrhage [None]
  - Respiratory failure [None]
  - Subarachnoid haemorrhage [None]
  - Cerebral haemorrhage [None]
  - Hemiplegia [None]
  - Hemianopia homonymous [None]
  - Coagulopathy [None]

NARRATIVE: CASE EVENT DATE: 20190223
